FAERS Safety Report 7664741-5 (Version None)
Quarter: 2011Q3

REPORT INFORMATION
  Report Type: 
  Country: None (occurrence: None)
  Receive Date: 20110806
  Receipt Date: 20110121
  Transmission Date: 20111222
  Serious: No
  Sender: FDA-Public Use
  Company Number: US-ABBOTT-11P-163-0700438-00

PATIENT
  Sex: Female

DRUGS (2)
  1. NIASPAN [Suspect]
     Dates: start: 20101201, end: 20101201
  2. NIASPAN [Suspect]
     Indication: BLOOD CHOLESTEROL INCREASED
     Dates: start: 20101201, end: 20101201

REACTIONS (1)
  - URTICARIA [None]
